FAERS Safety Report 15537828 (Version 1)
Quarter: 2018Q4

REPORT INFORMATION
  Report Type: Spontaneous
  Country: US (occurrence: US)
  Receive Date: 20181022
  Receipt Date: 20181022
  Transmission Date: 20190205
  Serious: No
  Sender: FDA-Public Use
  Company Number: US-UNITED THERAPEUTICS-UNT-2018-017014

PATIENT
  Age: 50 Year
  Sex: Female
  Weight: 73.92 kg

DRUGS (1)
  1. REMODULIN [Suspect]
     Active Substance: TREPROSTINIL
     Indication: PULMONARY ARTERIAL HYPERTENSION
     Dosage: 0.008 ?G/KG, CONTINUING
     Route: 041
     Dates: start: 20180806

REACTIONS (2)
  - Catheter site extravasation [Unknown]
  - Device issue [Unknown]

NARRATIVE: CASE EVENT DATE: 201810
